FAERS Safety Report 12077529 (Version 1)
Quarter: 2016Q1

REPORT INFORMATION
  Report Type: Spontaneous
  Country: US (occurrence: US)
  Receive Date: 20160215
  Receipt Date: 20160215
  Transmission Date: 20160526
  Serious: Yes (Other)
  Sender: FDA-Public Use
  Company Number: US-JNJFOC-20160119025

PATIENT
  Age: 52 Year
  Sex: Female

DRUGS (1)
  1. BENADRYL EXTRA STRENGTH ITCH STOPPING [Suspect]
     Active Substance: DIPHENHYDRAMINE HYDROCHLORIDE\ZINC ACETATE
     Indication: PRURITUS
     Route: 061

REACTIONS (4)
  - Gastrointestinal stoma complication [None]
  - Drug ineffective [Unknown]
  - Enterostomy [Unknown]
  - Malaise [Unknown]
